FAERS Safety Report 19709681 (Version 3)
Quarter: 2021Q3

REPORT INFORMATION
  Report Type: Spontaneous
  Country: JP (occurrence: JP)
  Receive Date: 20210817
  Receipt Date: 20210930
  Transmission Date: 20211014
  Serious: Yes (Death, Other)
  Sender: FDA-Public Use
  Company Number: JP-PFIZER INC-202101038141

PATIENT
  Age: 79 Year
  Sex: Male

DRUGS (2)
  1. OXALIPLATIN. [Suspect]
     Active Substance: OXALIPLATIN
     Indication: COLON CANCER STAGE IV
     Dosage: 1200 MG/DL, CYCLIC (DAY 1)
  2. CAPECITABINE. [Suspect]
     Active Substance: CAPECITABINE
     Indication: COLON CANCER STAGE IV
     Dosage: 1800 MG, CYCLIC (X 2/DAY) (DAY 1?14)

REACTIONS (3)
  - Second primary malignancy [Fatal]
  - Hypoaesthesia [Unknown]
  - Acute myeloid leukaemia [Fatal]
